FAERS Safety Report 6429249-3 (Version None)
Quarter: 2009Q4

REPORT INFORMATION
  Report Type: 
  Country: None (occurrence: None)
  Receive Date: 20091105
  Receipt Date: 20091028
  Transmission Date: 20100525
  Serious: Yes (Hospitalization, Other)
  Sender: FDA-Public Use
  Company Number: PHHO2008DE14407

PATIENT
  Sex: Male
  Weight: 69 kg

DRUGS (4)
  1. ZOMETA [Suspect]
     Indication: METASTASES TO BONE
     Dosage: 4 MG / 4 WEEKS
     Dates: start: 20071101, end: 20081125
  2. RAD 666 RAD+TAB [Suspect]
     Indication: METASTATIC RENAL CELL CARCINOMA
     Dosage: 10 MG / DAY
     Route: 048
     Dates: start: 20081002, end: 20081116
  3. NOVALGIN [Concomitant]
     Dosage: 3000 MG / DAY
     Route: 048
     Dates: start: 20070301
  4. MORPHINE [Concomitant]
     Dosage: 20 MG / DAY
     Dates: start: 20080201

REACTIONS (9)
  - HEADACHE [None]
  - INFECTION [None]
  - JAW OPERATION [None]
  - METASTASIS [None]
  - NECK PAIN [None]
  - OSTEOLYSIS [None]
  - OSTEONECROSIS [None]
  - OSTEOTOMY [None]
  - TOOTH EXTRACTION [None]
